FAERS Safety Report 24715666 (Version 1)
Quarter: 2024Q4

REPORT INFORMATION
  Report Type: Spontaneous
  Country: JP (occurrence: JP)
  Receive Date: 20241210
  Receipt Date: 20241210
  Transmission Date: 20250115
  Serious: Yes (Other)
  Sender: INVENTIA HEALTHCARE LTD
  Company Number: JP-IHL-000625

PATIENT
  Age: 61 Year
  Sex: Female

DRUGS (3)
  1. URSODIOL [Concomitant]
     Active Substance: URSODIOL
     Indication: Metabolic dysfunction-associated liver disease
     Route: 065
  2. CALCIUM POLYCARBOPHIL [Concomitant]
     Active Substance: CALCIUM POLYCARBOPHIL
     Indication: Product used for unknown indication
     Route: 065
  3. OLMESARTAN MEDOXOMIL [Suspect]
     Active Substance: OLMESARTAN MEDOXOMIL
     Indication: Hypertension
     Route: 048

REACTIONS (2)
  - Gastritis [Recovered/Resolved]
  - Sprue-like enteropathy [Recovered/Resolved]
